FAERS Safety Report 5967445-X (Version None)
Quarter: 2008Q4

REPORT INFORMATION
  Report Type: 
  Country: None (occurrence: None)
  Receive Date: 20081125
  Receipt Date: 20081118
  Transmission Date: 20090506
  Serious: Yes (Disabling, Other)
  Sender: FDA-Public Use
  Company Number: US-ALLERGAN-0812676US

PATIENT
  Sex: Female
  Weight: 66.213 kg

DRUGS (15)
  1. BOTOX [Suspect]
     Indication: MIGRAINE
     Dosage: 75 UNITS, SINGLE
     Route: 030
     Dates: start: 20051021, end: 20051021
  2. BOTOX [Suspect]
     Dosage: 75 UNITS, SINGLE
     Route: 030
     Dates: start: 20060726, end: 20060726
  3. BOTOX [Suspect]
     Dosage: 75 UNITS, SINGLE
     Route: 030
     Dates: start: 20061027, end: 20061027
  4. PETADOLEX [Concomitant]
     Indication: MIGRAINE
     Dosage: BUTTERBUR - HERBAL
  5. TOPAMAX [Concomitant]
     Indication: MIGRAINE
  6. OMEGA-3 FATTY ACIDS [Concomitant]
     Indication: INFLAMMATION
     Dosage: 1200 MG, QAM
     Dates: start: 20051021
  7. CALCIUM CARBONATE W/VITAMIN D NOS [Concomitant]
     Indication: NERVOUS SYSTEM DISORDER
     Dosage: 1000 MG, BID
  8. CALCIUM CARBONATE W/VITAMIN D NOS [Concomitant]
     Indication: BONE DISORDER
  9. BENADRYL [Concomitant]
     Indication: SLEEP DISORDER
     Dosage: 25 MG, QHS
     Dates: start: 20051021
  10. AXERT [Concomitant]
     Indication: HEADACHE
     Dosage: UNK, PRN
  11. IBUPROFEN TABLETS [Concomitant]
     Indication: HEADACHE
     Dosage: 600 MG, PRN
  12. AMBIEN CR [Concomitant]
     Indication: SLEEP DISORDER
     Dosage: SEVERAL MONTHS
  13. AMBIEN CR [Concomitant]
     Indication: PAIN
  14. ELAVIL [Concomitant]
     Dosage: 12.5 MG, UNK
  15. LEVAQUIN [Concomitant]
     Indication: URINARY TRACT INFECTION
     Dosage: 500 MG, QD 7 DAYS

REACTIONS (33)
  - ARTHRALGIA [None]
  - ARTHROPOD BITE [None]
  - ASTHENIA [None]
  - BLOOD POTASSIUM DECREASED [None]
  - CHEST DISCOMFORT [None]
  - CHEST PAIN [None]
  - CHOKING [None]
  - CONFUSIONAL STATE [None]
  - COUGH [None]
  - DIPLOPIA [None]
  - DISTURBANCE IN ATTENTION [None]
  - DRY THROAT [None]
  - DYSGEUSIA [None]
  - DYSPHONIA [None]
  - ENURESIS [None]
  - FATIGUE [None]
  - FOREIGN BODY TRAUMA [None]
  - HEARING IMPAIRED [None]
  - JOINT LOCK [None]
  - MUSCULOSKELETAL STIFFNESS [None]
  - MYALGIA [None]
  - NEUROPATHY PERIPHERAL [None]
  - OCULAR HYPERAEMIA [None]
  - PAROSMIA [None]
  - PHOTOSENSITIVITY REACTION [None]
  - PRODUCTIVE COUGH [None]
  - SOMNOLENCE [None]
  - THYROXINE INCREASED [None]
  - TRI-IODOTHYRONINE INCREASED [None]
  - URINE ODOUR ABNORMAL [None]
  - VISUAL IMPAIRMENT [None]
  - VOCAL CORD DISORDER [None]
  - WHEEZING [None]
